FAERS Safety Report 22540869 (Version 1)
Quarter: 2023Q2

REPORT INFORMATION
  Report Type: Report from Study
  Country: IT (occurrence: IT)
  Receive Date: 20230609
  Receipt Date: 20230609
  Transmission Date: 20230721
  Serious: Yes (Hospitalization, Other)
  Sender: FDA-Public Use
  Company Number: IT-BAXTER-2023BAX023097

PATIENT
  Age: 58 Year
  Sex: Male
  Weight: 74.6 kg

DRUGS (5)
  1. DOXORUBICIN HYDROCHLORIDE [Suspect]
     Active Substance: DOXORUBICIN HYDROCHLORIDE
     Indication: Solitary fibrous tumour
     Dosage: 75 MG/M2 (TOTAL DOSE GIVEN 141.97 MG), Q3W
     Route: 042
     Dates: start: 20220913, end: 20230112
  2. YONDELIS [Suspect]
     Active Substance: TRABECTEDIN
     Indication: Solitary fibrous tumour
     Dosage: 1.3 MG/M2 (TOTAL DOSE GIVEN 2.48 MG), Q3W
     Route: 042
     Dates: start: 20230509, end: 20230509
  3. DACARBAZINE [Suspect]
     Active Substance: DACARBAZINE
     Indication: Solitary fibrous tumour
     Dosage: 400 MG/M2 (TOTAL DOSE GIVEN 757.19 MG), Q3W
     Route: 042
     Dates: start: 20220913, end: 20230112
  4. BISOPROLOL [Concomitant]
     Active Substance: BISOPROLOL
  5. VALSARTAN [Concomitant]
     Active Substance: VALSARTAN

REACTIONS (4)
  - Hypertension [Not Recovered/Not Resolved]
  - Dyspnoea [Not Recovered/Not Resolved]
  - Sinus tachycardia [Not Recovered/Not Resolved]
  - Cardiac failure [Not Recovered/Not Resolved]

NARRATIVE: CASE EVENT DATE: 20230512
